FAERS Safety Report 19041830 (Version 1)
Quarter: 2021Q1

REPORT INFORMATION
  Report Type: Spontaneous
  Country: US (occurrence: US)
  Receive Date: 20210322
  Receipt Date: 20210322
  Transmission Date: 20210420
  Serious: No
  Sender: FDA-Public Use
  Company Number: US-AMNEAL PHARMACEUTICALS-2021-AMRX-00173

PATIENT

DRUGS (2)
  1. SUCRALFATE. [Suspect]
     Active Substance: SUCRALFATE
     Indication: PRODUCT USED FOR UNKNOWN INDICATION
     Dosage: 10 MILLILITER, 4 /DAY
     Route: 065
     Dates: start: 20210112, end: 20210115
  2. SUCRALFATE. [Suspect]
     Active Substance: SUCRALFATE
     Dosage: 10 MILLILITER, 4 /DAY
     Route: 065
     Dates: start: 20210112, end: 20210115

REACTIONS (2)
  - Drug ineffective [Recovered/Resolved]
  - Product prescribing error [Unknown]

NARRATIVE: CASE EVENT DATE: 20210112
